FAERS Safety Report 11611310 (Version 2)
Quarter: 2015Q4

REPORT INFORMATION
  Report Type: Spontaneous
  Country: US (occurrence: US)
  Receive Date: 20151008
  Receipt Date: 20151117
  Transmission Date: 20160304
  Serious: Yes (Other)
  Sender: FDA-Public Use
  Company Number: US-BAYER-2015-434868

PATIENT
  Age: 16 Year
  Sex: Female
  Weight: 46.26 kg

DRUGS (1)
  1. OCELLA [Suspect]
     Active Substance: DROSPIRENONE\ETHINYL ESTRADIOL
     Indication: MENSTRUATION DELAYED
     Dosage: UNK
     Route: 048
     Dates: end: 20151004

REACTIONS (3)
  - Scar [None]
  - Skin lesion [None]
  - Blood cortisol increased [None]

NARRATIVE: CASE EVENT DATE: 201507
